FAERS Safety Report 5390781-5 (Version None)
Quarter: 2007Q3

REPORT INFORMATION
  Report Type: 
  Country: None (occurrence: None)
  Receive Date: 20070716
  Receipt Date: 20070628
  Transmission Date: 20080115
  Serious: Yes (Hospitalization)
  Sender: FDA-Public Use
  Company Number: S07-FRA-02700-01

PATIENT
  Age: 55 Year
  Sex: Male
  Weight: 105 kg

DRUGS (6)
  1. ESCITALOPRAM [Suspect]
     Indication: MAJOR DEPRESSION
     Dosage: 10 MG BID PO
     Route: 048
     Dates: start: 20070521, end: 20070615
  2. LOXAPINE SUCCINATE [Suspect]
     Indication: DELIRIUM
     Dosage: 50 MG QD PO
     Route: 048
     Dates: start: 20070608, end: 20070615
  3. LOXAPINE SUCCINATE [Suspect]
     Indication: DELIRIUM
     Dosage: 100 MG QD PO
     Route: 048
     Dates: start: 20070601, end: 20070608
  4. LOXAPINE SUCCINATE [Suspect]
     Indication: DELIRIUM
     Dosage: 150MG QD PO
     Route: 048
     Dates: start: 20070525, end: 20070601
  5. LOXAPINE SUCCINATE [Suspect]
     Indication: DELIRIUM
     Dosage: 100 MG QD IM
     Route: 030
     Dates: start: 20070522, end: 20070525
  6. PARKINANE (TRIHEXYPHENIDYL HYDROCHLORIDE) [Suspect]
     Indication: MUSCLE CONTRACTURE
     Dosage: 5 MG BID PO
     Route: 048
     Dates: start: 20070528, end: 20070615

REACTIONS (2)
  - ACUTE GENERALISED EXANTHEMATOUS PUSTULOSIS [None]
  - TOXIC SKIN ERUPTION [None]
